FAERS Safety Report 5845431-8 (Version None)
Quarter: 2008Q3

REPORT INFORMATION
  Report Type: 
  Country: None (occurrence: None)
  Receive Date: 20080814
  Receipt Date: 19970724
  Transmission Date: 20090109
  Serious: Yes (Death, Life-Threatening, Hospitalization)
  Sender: FDA-Public Use
  Company Number: B034079

PATIENT
  Age: 84 Year
  Sex: Male

DRUGS (7)
  1. MAXIPIME [Suspect]
     Indication: PNEUMONIA
     Route: 050
     Dates: start: 19970722, end: 19970724
  2. LIQUAEMIN INJ [Concomitant]
     Indication: DEEP VEIN THROMBOSIS
     Dosage: 1 DOSAGE FORM=32000 UNITS
     Route: 050
     Dates: start: 19970722
  3. MODURETIC 5-50 [Concomitant]
     Indication: CORONARY ARTERY DISEASE
     Dosage: DURATION VALUE: }1,1 DOSAGE FORM=50/5MG
     Route: 048
  4. MODURETIC 5-50 [Concomitant]
     Indication: HYPERTENSIVE HEART DISEASE
     Dosage: DURATION VALUE: }1,1 DOSAGE FORM=50/5MG
     Route: 048
  5. DEPONIT 5 [Concomitant]
     Indication: HYPERTENSION
     Dosage: DURATION VALUE: }1
     Route: 050
  6. DEPONIT 5 [Concomitant]
     Indication: HYPERTENSIVE HEART DISEASE
     Dosage: DURATION VALUE: }1
     Route: 050
  7. DEPONIT 5 [Concomitant]
     Indication: CORONARY ARTERY DISEASE
     Dosage: DURATION VALUE: }1
     Route: 050

REACTIONS (1)
  - PULMONARY EMBOLISM [None]
